FAERS Safety Report 9480434 (Version 1)
Quarter: 2013Q3

REPORT INFORMATION
  Report Type: Spontaneous
  Country: US (occurrence: US)
  Receive Date: 20130828
  Receipt Date: 20130828
  Transmission Date: 20140515
  Serious: Yes (Death, Hospitalization, Other)
  Sender: FDA-Public Use
  Company Number: US-AMGEN-KDL102589

PATIENT
  Age: 69 Year
  Sex: Female

DRUGS (3)
  1. ENBREL [Suspect]
     Indication: RHEUMATOID ARTHRITIS
     Dosage: 25 MG, UNK
     Route: 065
     Dates: start: 1999
  2. PREDNISONE [Concomitant]
     Dosage: 3 MG, QD
     Dates: start: 1986
  3. SULFASALAZINE [Concomitant]
     Dosage: 500 MG, QD
     Route: 048
     Dates: start: 1986

REACTIONS (4)
  - Cardiac failure congestive [Fatal]
  - Renal failure [Unknown]
  - Staphylococcal infection [Unknown]
  - Diarrhoea [Unknown]
